FAERS Safety Report 9436756 (Version 1)
Quarter: 2013Q3

REPORT INFORMATION
  Report Type: Spontaneous
  Country: US (occurrence: US)
  Receive Date: 20130802
  Receipt Date: 20130802
  Transmission Date: 20140515
  Serious: Yes (Other)
  Sender: FDA-Public Use
  Company Number: US-JNJFOC-20130715853

PATIENT
  Sex: Female
  Weight: 50.8 kg

DRUGS (2)
  1. UNSPECIFIED FENTANYL TRANSDERMA L SYSTEM [Suspect]
     Indication: PAIN
     Route: 062
     Dates: start: 2008
  2. OXYCODONE [Concomitant]
     Indication: BREAKTHROUGH PAIN
     Dosage: FOUR TIMES DAILY AS NEEDED
     Route: 048

REACTIONS (2)
  - Accidental overdose [Recovered/Resolved]
  - Organ failure [Recovered/Resolved]
